FAERS Safety Report 5959587-X (Version None)
Quarter: 2008Q4

REPORT INFORMATION
  Report Type: 
  Country: None (occurrence: None)
  Receive Date: 20081120
  Receipt Date: 20081111
  Transmission Date: 20090506
  Serious: Yes (Hospitalization)
  Sender: FDA-Public Use
  Company Number: IT-AMGEN-US291087

PATIENT
  Sex: Female

DRUGS (3)
  1. ENBREL [Suspect]
     Indication: RHEUMATOID ARTHRITIS
     Dosage: PRE-FILLED (50 MG WEEKLY)
     Route: 058
     Dates: start: 20070101, end: 20070610
  2. HUMIRA [Suspect]
     Indication: DRUG USE FOR UNKNOWN INDICATION
     Route: 058
     Dates: start: 20070620, end: 20080201
  3. MEDROL [Concomitant]
     Dosage: 6 MG DAILY SINCE 9 YEARS
     Route: 048

REACTIONS (1)
  - PULMONARY TUBERCULOSIS [None]
